FAERS Safety Report 13375128 (Version 1)
Quarter: 2017Q1

REPORT INFORMATION
  Report Type: Report from Study
  Country: None (occurrence: BR)
  Receive Date: 20170327
  Receipt Date: 20170327
  Transmission Date: 20170429
  Serious: Yes (Other)
  Sender: FDA-Public Use
  Company Number: BR-ABBVIE-17P-020-1912769-00

PATIENT
  Sex: Female
  Weight: 67 kg

DRUGS (14)
  1. LOSARTAN. [Concomitant]
     Active Substance: LOSARTAN
     Indication: HYPERTENSION
     Route: 048
     Dates: start: 201509
  2. ACETYLSALICYLIC ACID (AAS INFANTIL) [Concomitant]
     Indication: ANTICOAGULANT THERAPY
     Route: 048
     Dates: start: 201509
  3. CALCIUM [Concomitant]
     Active Substance: CALCIUM
     Indication: BONE DISORDER
     Route: 048
     Dates: start: 2013
  4. OMEPRAZOLE. [Concomitant]
     Active Substance: OMEPRAZOLE
     Indication: GASTRIC DISORDER
     Route: 048
  5. CLONAZEPAM (RIVOTRIL) [Concomitant]
     Indication: AGITATION
     Route: 048
     Dates: start: 201509
  6. HUMIRA [Suspect]
     Active Substance: ADALIMUMAB
     Indication: RHEUMATOID ARTHRITIS
     Route: 058
     Dates: start: 20120101
  7. INSULIN [Concomitant]
     Active Substance: INSULIN NOS
     Indication: DIABETES MELLITUS
     Route: 058
     Dates: start: 2012
  8. BISOPROLOL HEMIFUMARATE [Concomitant]
     Active Substance: BISOPROLOL FUMARATE
     Indication: CARDIAC DISORDER
     Route: 048
     Dates: start: 201509
  9. ESTROGENS CONJUGATED (PREMARIN) [Concomitant]
     Indication: HORMONE REPLACEMENT THERAPY
     Route: 048
  10. METFORMIN (GLIFAGE MR) [Concomitant]
     Indication: DIABETES MELLITUS
     Route: 048
  11. ATORVASTATIN [Concomitant]
     Active Substance: ATORVASTATIN
     Indication: BLOOD CHOLESTEROL ABNORMAL
     Route: 048
     Dates: start: 2007
  12. CLOMIPRAMINE (ANAFRANIL) [Concomitant]
     Indication: DEPRESSION
     Dosage: 25 OR 50MG EVERY 2 DAYS
     Route: 048
     Dates: start: 2002
  13. CAPTOPRIL. [Concomitant]
     Active Substance: CAPTOPRIL
     Indication: PRODUCT USED FOR UNKNOWN INDICATION
  14. GLUCOSAMINE [Concomitant]
     Active Substance: GLUCOSAMINE
     Indication: CHONDROPATHY
     Route: 048
     Dates: start: 2014

REACTIONS (5)
  - Coronary vein stenosis [Recovered/Resolved]
  - Chest pain [Recovered/Resolved]
  - Agitation [Unknown]
  - Injection site pain [Recovering/Resolving]
  - Fatigue [Recovered/Resolved]

NARRATIVE: CASE EVENT DATE: 2012
